FAERS Safety Report 8172755-4 (Version None)
Quarter: 2012Q1

REPORT INFORMATION
  Report Type: 
  Country: None (occurrence: None)
  Receive Date: 20120229
  Receipt Date: 20120221
  Transmission Date: 20120608
  Serious: Yes (Hospitalization)
  Sender: FDA-Public Use
  Company Number: FR-BAYER-2012-017849

PATIENT
  Age: 86 Year
  Sex: Male

DRUGS (16)
  1. LUMIGAN [Concomitant]
     Dosage: 1 DF, QD
     Route: 047
  2. SECTRAL [Concomitant]
     Dosage: 0.5 DF, QD
     Route: 048
  3. ACETAMINOPHEN [Concomitant]
     Dosage: 1 DF, QID
     Route: 048
     Dates: start: 20111210
  4. EBASTINE [Concomitant]
     Dosage: 1 DF, BID
     Route: 048
     Dates: start: 20111222, end: 20111230
  5. PREVISCAN [Concomitant]
     Dosage: 0.75 DF, QD
     Route: 048
  6. LASILIX [Concomitant]
     Dosage: 1 DF, BID
     Route: 048
  7. LEVOTHYROXINE SODIUM [Concomitant]
     Dosage: 1 DF, QD
     Route: 048
  8. INSULATARD NPH HUMAN [Concomitant]
     Dosage: 12 IU, BID
     Route: 058
  9. CIPROFLOXACIN [Suspect]
     Dosage: 1 DF, TID
     Route: 048
     Dates: start: 20111223, end: 20120120
  10. LYRICA [Concomitant]
     Dosage: 1 DF, BID
     Route: 048
  11. AMLODIPINE BESYLATE [Concomitant]
     Dosage: 1 DF, QD
     Route: 048
  12. XYZAL [Concomitant]
     Dosage: 5 MG, QD
     Route: 048
     Dates: start: 20111227, end: 20120120
  13. ATARAX [Concomitant]
  14. PLAVIX [Concomitant]
     Dosage: 1 DF, QD
     Route: 048
  15. INVANZ [Suspect]
     Dosage: 1 DF, BID
     Route: 042
     Dates: start: 20111223, end: 20120120
  16. ZESTRIL [Concomitant]
     Dosage: 1 DF, QD
     Route: 048

REACTIONS (2)
  - RASH GENERALISED [None]
  - PRURITUS [None]
